FAERS Safety Report 9681852 (Version 1)
Quarter: 2013Q4

REPORT INFORMATION
  Report Type: Spontaneous
  Country: US (occurrence: US)
  Receive Date: 20131111
  Receipt Date: 20131111
  Transmission Date: 20140711
  Serious: No
  Sender: FDA-Public Use
  Company Number: US-PFIZER INC-2013317617

PATIENT
  Sex: Female

DRUGS (2)
  1. CARDURA [Suspect]
     Dosage: 2 MG, 1X/DAY
  2. CARDURA [Suspect]
     Dosage: 4 MG, DAILY (4 MG [2 TABLETS] DAILY)

REACTIONS (1)
  - Drug ineffective [Unknown]
